FAERS Safety Report 17532300 (Version 1)
Quarter: 2020Q1

REPORT INFORMATION
  Report Type: Spontaneous
  Country: CN (occurrence: CN)
  Receive Date: 20200312
  Receipt Date: 20200312
  Transmission Date: 20200409
  Serious: Yes (Other)
  Sender: FDA-Public Use
  Company Number: CN-ROCHE-2565638

PATIENT
  Age: 55 Year
  Sex: Male

DRUGS (19)
  1. MABTHERA [Suspect]
     Active Substance: RITUXIMAB
     Route: 065
     Dates: start: 20200110
  2. PIRARUBICIN [Concomitant]
     Active Substance: PIRARUBICIN
     Dosage: R-CHOP REGIMEN, DAY1
     Route: 065
     Dates: start: 20191123
  3. PREDNISONE. [Concomitant]
     Active Substance: PREDNISONE
     Indication: MANTLE CELL LYMPHOMA STAGE IV
     Dosage: CHOP REGIMEN,DAY1-5
     Route: 065
     Dates: start: 20191102
  4. IBRUTINIB [Concomitant]
     Active Substance: IBRUTINIB
     Indication: MANTLE CELL LYMPHOMA STAGE IV
     Route: 065
     Dates: start: 20191219
  5. METHOTREXATE. [Concomitant]
     Active Substance: METHOTREXATE
     Indication: MANTLE CELL LYMPHOMA STAGE IV
     Route: 037
     Dates: start: 20200123
  6. METHOTREXATE. [Concomitant]
     Active Substance: METHOTREXATE
     Dosage: DAY1
     Route: 037
     Dates: start: 20200304
  7. CYCLOPHOSPHAMIDE. [Concomitant]
     Active Substance: CYCLOPHOSPHAMIDE
     Indication: MANTLE CELL LYMPHOMA STAGE IV
     Dosage: CHOP REGIMEN,DAY1
     Route: 065
     Dates: start: 20191102
  8. PIRARUBICIN [Concomitant]
     Active Substance: PIRARUBICIN
     Indication: MANTLE CELL LYMPHOMA STAGE IV
     Dosage: CHOP REGIMEN,DAY1
     Route: 065
     Dates: start: 20191102
  9. IBRUTINIB [Concomitant]
     Active Substance: IBRUTINIB
     Route: 037
     Dates: start: 20200304
  10. VINORELBINE [Concomitant]
     Active Substance: VINORELBINE TARTRATE
     Dosage: R-CHOP REGIMEN, DAY1
     Route: 065
     Dates: start: 20191123
  11. MABTHERA [Suspect]
     Active Substance: RITUXIMAB
     Route: 065
     Dates: start: 20191219
  12. MABTHERA [Suspect]
     Active Substance: RITUXIMAB
     Indication: MANTLE CELL LYMPHOMA STAGE IV
     Dosage: R-CHOP REGIMEN
     Route: 065
     Dates: start: 20191123
  13. CYCLOPHOSPHAMIDE. [Concomitant]
     Active Substance: CYCLOPHOSPHAMIDE
     Dosage: R-CHOP REGIMEN, DAY1
     Route: 065
     Dates: start: 20191123
  14. IBRUTINIB [Concomitant]
     Active Substance: IBRUTINIB
     Route: 065
     Dates: start: 20200110
  15. CYTARABINE. [Concomitant]
     Active Substance: CYTARABINE
     Indication: MANTLE CELL LYMPHOMA STAGE IV
     Dosage: DAY1-2
     Route: 037
     Dates: start: 20200304
  16. VINORELBINE [Concomitant]
     Active Substance: VINORELBINE TARTRATE
     Indication: MANTLE CELL LYMPHOMA STAGE IV
     Dosage: CHOP REGIMEN,DAY1
     Route: 065
     Dates: start: 20191102
  17. IBRUTINIB [Concomitant]
     Active Substance: IBRUTINIB
     Route: 037
     Dates: start: 20200210
  18. PREDNISONE. [Concomitant]
     Active Substance: PREDNISONE
     Dosage: R-CHOP REGIMEN, DAY1-5
     Route: 065
     Dates: start: 20191123
  19. METHOTREXATE. [Concomitant]
     Active Substance: METHOTREXATE
     Dosage: DAY2
     Route: 037
     Dates: start: 20200210

REACTIONS (3)
  - Off label use [Unknown]
  - Pericardial effusion [Unknown]
  - Intentional product use issue [Unknown]
